FAERS Safety Report 16983790 (Version 1)
Quarter: 2019Q4

REPORT INFORMATION
  Report Type: Spontaneous
  Country: US (occurrence: US)
  Receive Date: 20191101
  Receipt Date: 20191101
  Transmission Date: 20200122
  Serious: Yes (Other)
  Sender: FDA-Public Use
  Company Number: US-ZYDUS-042746

PATIENT
  Age: 36 Year
  Sex: Female

DRUGS (2)
  1. MODAFINIL. [Suspect]
     Active Substance: MODAFINIL
     Indication: SHIFT WORK DISORDER
  2. SALBUTAMOL/SALBUTAMOL SULFATE [Concomitant]
     Indication: PRODUCT USED FOR UNKNOWN INDICATION

REACTIONS (5)
  - Nasal congestion [Recovered/Resolved]
  - Respiratory alkalosis [Recovered/Resolved]
  - Lactic acidosis [Recovered/Resolved]
  - Cough [Recovered/Resolved]
  - Hyperventilation [Recovered/Resolved]
